FAERS Safety Report 21421715 (Version 1)
Quarter: 2022Q4

REPORT INFORMATION
  Report Type: Spontaneous
  Country: US (occurrence: US)
  Receive Date: 20221007
  Receipt Date: 20221007
  Transmission Date: 20230112
  Serious: Yes (Death, Hospitalization, Other)
  Sender: FDA-Public Use
  Company Number: US-Accord-280371

PATIENT
  Age: 37 Year
  Sex: Female

DRUGS (5)
  1. METHOTREXATE [Suspect]
     Active Substance: METHOTREXATE
     Indication: Metastases to meninges
     Route: 037
  2. DESFLURANE [Interacting]
     Active Substance: DESFLURANE
     Indication: Induction of anaesthesia
  3. NITROUS OXIDE [Interacting]
     Active Substance: NITROUS OXIDE
     Indication: Induction of anaesthesia
  4. PROPOFOL [Interacting]
     Active Substance: PROPOFOL
     Indication: Induction of anaesthesia
  5. LEVETIRACETAM [Concomitant]
     Active Substance: LEVETIRACETAM

REACTIONS (2)
  - Brain oedema [Fatal]
  - Drug interaction [Fatal]
